FAERS Safety Report 16116895 (Version 2)
Quarter: 2019Q2

REPORT INFORMATION
  Report Type: Report from Study
  Country: US (occurrence: US)
  Receive Date: 20190326
  Receipt Date: 20190620
  Transmission Date: 20190711
  Serious: No
  Sender: FDA-Public Use
  Company Number: PHEH2019US012555

PATIENT
  Age: 50 Year
  Sex: Male

DRUGS (1)
  1. COSENTYX [Suspect]
     Active Substance: SECUKINUMAB
     Indication: PSORIATIC ARTHROPATHY
     Route: 065

REACTIONS (6)
  - Feeling jittery [Unknown]
  - Nervousness [Unknown]
  - Skin hypertrophy [Unknown]
  - Rhinorrhoea [Unknown]
  - Hot flush [Unknown]
  - Skin exfoliation [Unknown]
